FAERS Safety Report 4388377-7 (Version None)
Quarter: 2004Q3

REPORT INFORMATION
  Report Type: 
  Country: None (occurrence: None)
  Receive Date: 20040701
  Receipt Date: 20040618
  Transmission Date: 20050211
  Serious: Yes (Other)
  Sender: FDA-Public Use
  Company Number: US-BRISTOL-MYERS SQUIBB COMPANY-12620233

PATIENT
  Sex: Male

DRUGS (5)
  1. ERBITUX [Suspect]
     Indication: COLON CANCER METASTATIC
     Dosage: 1ST INFUSION, 100 CC ADMINISTERED
     Route: 042
  2. IRINOTECAN [Concomitant]
  3. ALOXI [Concomitant]
     Indication: PREMEDICATION
  4. DEXAMETHASONE TAB [Concomitant]
     Indication: PREMEDICATION
  5. BENADRYL [Concomitant]
     Indication: PREMEDICATION

REACTIONS (4)
  - DYSPNOEA [None]
  - HOARSENESS [None]
  - PALPITATIONS [None]
  - STRIDOR [None]
